FAERS Safety Report 7745178-7 (Version None)
Quarter: 2011Q3

REPORT INFORMATION
  Report Type: 
  Country: None (occurrence: None)
  Receive Date: 20110908
  Receipt Date: 20110908
  Transmission Date: 20111222
  Serious: Yes (Other)
  Sender: FDA-Public Use
  Company Number: US-2011-10613

PATIENT
  Age: 28 Year
  Sex: Female

DRUGS (8)
  1. ETOPOSIDE [Concomitant]
  2. CYCLOPHOSPHAMIDE [Concomitant]
  3. ACYCLOVIR [Concomitant]
  4. ZOFRAN [Concomitant]
  5. ATIVAN [Concomitant]
  6. AMBIEN [Concomitant]
  7. BUSULFAN [Suspect]
     Indication: STEM CELL TRANSPLANT
     Dosage: 47 MG MILLIGRAM(S), DAILY DOSE, INTRAVENOUS          236 MG MILLIGRAM(S), DAILY DOSE, INTRAVENOUS
     Route: 042
     Dates: start: 20110509, end: 20110509
  8. BUSULFAN [Suspect]
     Indication: STEM CELL TRANSPLANT
     Dosage: 47 MG MILLIGRAM(S), DAILY DOSE, INTRAVENOUS          236 MG MILLIGRAM(S), DAILY DOSE, INTRAVENOUS
     Route: 042
     Dates: start: 20110512, end: 20110515

REACTIONS (2)
  - OBSTRUCTIVE AIRWAYS DISORDER [None]
  - RESTRICTIVE PULMONARY DISEASE [None]
